FAERS Safety Report 18863737 (Version 1)
Quarter: 2021Q1

REPORT INFORMATION
  Report Type: Spontaneous
  Country: US (occurrence: US)
  Receive Date: 20210209
  Receipt Date: 20210209
  Transmission Date: 20210420
  Serious: No
  Sender: FDA-Public Use
  Company Number: US-SA-2021SA038543

PATIENT
  Age: 32 Year
  Sex: Female

DRUGS (4)
  1. VITAMIN D3 [Concomitant]
     Active Substance: CHOLECALCIFEROL
  2. KENALOG [Concomitant]
     Active Substance: TRIAMCINOLONE ACETONIDE
  3. VITAMIN B12 [VITAMIN B12 NOS] [Concomitant]
     Active Substance: CYANOCOBALAMIN
  4. DUPIXENT [Suspect]
     Active Substance: DUPILUMAB
     Indication: MYALGIA
     Dosage: 300 MG, QOW
     Route: 058
     Dates: start: 202011

REACTIONS (10)
  - Muscle atrophy [Unknown]
  - Product use in unapproved indication [Unknown]
  - Contusion [Unknown]
  - Bone disorder [Unknown]
  - Condition aggravated [Unknown]
  - Dry skin [Unknown]
  - Unevaluable event [Unknown]
  - Rash [Unknown]
  - Pruritus [Unknown]
  - Sleep disorder [Unknown]

NARRATIVE: CASE EVENT DATE: 202011
